FAERS Safety Report 6081587-2 (Version None)
Quarter: 2009Q1

REPORT INFORMATION
  Report Type: 
  Country: None (occurrence: None)
  Receive Date: 20090218
  Receipt Date: 20090210
  Transmission Date: 20090719
  Serious: Yes (Other)
  Sender: FDA-Public Use
  Company Number: US-BIOGENIDEC-2007BI017570

PATIENT
  Age: 27 Year
  Sex: Female

DRUGS (2)
  1. AVONEX [Suspect]
     Indication: MULTIPLE SCLEROSIS
     Route: 030
     Dates: start: 20040806, end: 20061201
  2. AVONEX [Suspect]
     Route: 030
     Dates: start: 20070818

REACTIONS (2)
  - ANTEPARTUM HAEMORRHAGE [None]
  - NO ADVERSE EVENT [None]
